FAERS Safety Report 5059482-7 (Version None)
Quarter: 2006Q3

REPORT INFORMATION
  Report Type: 
  Country: None (occurrence: None)
  Receive Date: 20060718
  Receipt Date: 20060710
  Transmission Date: 20061208
  Serious: Yes (Hospitalization)
  Sender: FDA-Public Use
  Company Number: 200612916BCC

PATIENT
  Age: 48 Year
  Sex: Male
  Weight: 71.6683 kg

DRUGS (4)
  1. EXTRA STRENGTH BAYER PLUS CAPLETS [Suspect]
     Indication: CHEST PAIN
     Dosage: 1000 MG, PRN, ORAL
     Route: 048
     Dates: start: 20060626
  2. EXTRA STRENGTH BAYER PLUS CAPLETS [Suspect]
     Indication: PAIN IN JAW
     Dosage: 1000 MG, PRN, ORAL
     Route: 048
     Dates: start: 20060626
  3. EXTRA STRENGTH BAYER PLUS CAPLETS [Suspect]
     Indication: CHEST PAIN
     Dosage: 1000 MG, PRN, ORAL
     Route: 048
     Dates: start: 20060630
  4. EXTRA STRENGTH BAYER PLUS CAPLETS [Suspect]
     Indication: PAIN IN JAW
     Dosage: 1000 MG, PRN, ORAL
     Route: 048
     Dates: start: 20060630

REACTIONS (3)
  - CHEST PAIN [None]
  - CORONARY ARTERY OCCLUSION [None]
  - PAIN IN JAW [None]
